FAERS Safety Report 9211635 (Version 3)
Quarter: 2013Q3

REPORT INFORMATION
  Report Type: Spontaneous
  Country: US (occurrence: US)
  Receive Date: 20130404
  Receipt Date: 20130708
  Transmission Date: 20140515
  Serious: No
  Sender: FDA-Public Use
  Company Number: US-AMGEN-USASP2013022717

PATIENT
  Age: 70 Year
  Sex: Male
  Weight: 107.3 kg

DRUGS (3)
  1. ENBREL [Suspect]
     Indication: PSORIASIS
     Dosage: 50 MG, 2 TIMES/WK
     Route: 058
     Dates: start: 20130326, end: 2013
  2. CITRAM [Concomitant]
     Dosage: 50 UNK, BID
     Route: 048
  3. AMBIEN [Concomitant]
     Dosage: 10 UNK, QHS
     Route: 048

REACTIONS (3)
  - Erythema [Not Recovered/Not Resolved]
  - Pruritus [Not Recovered/Not Resolved]
  - Skin plaque [Not Recovered/Not Resolved]
